FAERS Safety Report 13758963 (Version 1)
Quarter: 2017Q3

REPORT INFORMATION
  Report Type: Spontaneous
  Country: IE (occurrence: IE)
  Receive Date: 20170717
  Receipt Date: 20170717
  Transmission Date: 20171127
  Serious: Yes (Other)
  Sender: FDA-Public Use
  Company Number: IE-LUPIN PHARMACEUTICALS INC.-2017-03716

PATIENT
  Sex: Male
  Weight: 3.85 kg

DRUGS (1)
  1. MEFENAMIC ACID. [Suspect]
     Active Substance: MEFENAMIC ACID
     Indication: TOOTHACHE
     Dosage: 500 MG, TID
     Route: 064

REACTIONS (2)
  - Oligohydramnios [Unknown]
  - Foetal exposure during pregnancy [Unknown]
